FAERS Safety Report 6277820-4 (Version None)
Quarter: 2009Q3

REPORT INFORMATION
  Report Type: 
  Country: None (occurrence: None)
  Receive Date: 20090717
  Receipt Date: 20090717
  Transmission Date: 20100115
  Serious: Yes (Hospitalization)
  Sender: FDA-Public Use
  Company Number: None

PATIENT
  Sex: Male
  Weight: 92 kg

DRUGS (1)
  1. PROPOFOL [Suspect]
     Dosage: 40 MCG/KG/MIN IV DRIP
     Route: 041
     Dates: start: 20090522, end: 20090527

REACTIONS (4)
  - HYPERKALAEMIA [None]
  - NO THERAPEUTIC RESPONSE [None]
  - PROPOFOL INFUSION SYNDROME [None]
  - VENTRICULAR TACHYCARDIA [None]
